FAERS Safety Report 16626495 (Version 1)
Quarter: 2019Q3

REPORT INFORMATION
  Report Type: Spontaneous
  Country: CA (occurrence: CA)
  Receive Date: 20190724
  Receipt Date: 20190724
  Transmission Date: 20191004
  Serious: Yes (Death)
  Sender: FDA-Public Use
  Company Number: CA-TEVA-2019-CA-1080228

PATIENT
  Age: 77 Year
  Sex: Male

DRUGS (13)
  1. ACETAMINOPHEN AND CODEINE [Suspect]
     Active Substance: ACETAMINOPHEN\CODEINE PHOSPHATE
     Indication: LUNG INFILTRATION
     Route: 065
  2. CODEINE [Suspect]
     Active Substance: CODEINE
     Indication: LUNG INFILTRATION
     Route: 065
  3. CODEINE [Suspect]
     Active Substance: CODEINE
     Indication: CHEST PAIN
     Route: 065
  4. SODIUM BICARBONATE. [Concomitant]
     Active Substance: SODIUM BICARBONATE
  5. NOVO-PREDNISONE [Concomitant]
     Active Substance: PREDNISONE
  6. CALCIUM [Concomitant]
     Active Substance: CALCIUM
  7. DILTIAZEM. [Concomitant]
     Active Substance: DILTIAZEM
  8. MOXIFLOXACIN HYDROCHLORIDE. [Concomitant]
     Active Substance: MOXIFLOXACIN HYDROCHLORIDE
     Route: 065
  9. ROCALTROL [Concomitant]
     Active Substance: CALCITRIOL
  10. ACETAMINOPHEN AND CODEINE [Suspect]
     Active Substance: ACETAMINOPHEN\CODEINE PHOSPHATE
     Indication: CHEST PAIN
     Route: 065
  11. LOSARTAN/HCTZ [Concomitant]
     Active Substance: HYDROCHLOROTHIAZIDE\LOSARTAN
  12. PANTOPRAZOLE [Concomitant]
     Active Substance: PANTOPRAZOLE
  13. FOLIC ACID. [Concomitant]
     Active Substance: FOLIC ACID

REACTIONS (6)
  - Emphysema [Fatal]
  - Medication error [Fatal]
  - Toxicity to various agents [Fatal]
  - Accidental overdose [Fatal]
  - Pneumonia [Fatal]
  - Opiates positive [Fatal]
